FAERS Safety Report 10072120 (Version 2)
Quarter: 2014Q2

REPORT INFORMATION
  Report Type: Spontaneous
  Country: US (occurrence: US)
  Receive Date: 20140411
  Receipt Date: 20140418
  Transmission Date: 20141212
  Serious: Yes (Hospitalization, Other)
  Sender: FDA-Public Use
  Company Number: US-ASTRAZENECA-2014SE24276

PATIENT
  Age: 43 Year
  Sex: Female
  Weight: 113.4 kg

DRUGS (5)
  1. SEROQUEL XR [Suspect]
     Dosage: THREE TIMES DAILY.
     Route: 048
     Dates: start: 1997, end: 2001
  2. MORPHINE [Suspect]
     Route: 065
  3. LATUDA [Concomitant]
     Dosage: DAILY
     Route: 048
  4. CLONAZEPAM [Concomitant]
     Dosage: THREE TIMES DAILY
     Route: 048
  5. EPI PEN [Concomitant]
     Indication: FOOD ALLERGY
     Dosage: AS PER NEEDED
     Route: 058

REACTIONS (19)
  - Tic [Unknown]
  - Fall [Unknown]
  - Bone disorder [Unknown]
  - Ligament rupture [Unknown]
  - Meniscus injury [Unknown]
  - Weight increased [Unknown]
  - Drug hypersensitivity [Unknown]
  - Adverse event [Unknown]
  - Eating disorder [Unknown]
  - Borderline personality disorder [Unknown]
  - Anxiety disorder [Unknown]
  - Hallucination, auditory [Unknown]
  - Attention deficit/hyperactivity disorder [Unknown]
  - Appetite disorder [Unknown]
  - Vomiting [Unknown]
  - Adverse drug reaction [Unknown]
  - Weight fluctuation [Unknown]
  - Bite [Unknown]
  - Therapy cessation [Unknown]
